FAERS Safety Report 9167091 (Version 1)
Quarter: 2013Q1

REPORT INFORMATION
  Report Type: Spontaneous
  Country: US (occurrence: None)
  Receive Date: 20130315
  Receipt Date: 20130315
  Transmission Date: 20140127
  Serious: No
  Sender: FDA-Public Use
  Company Number: None

PATIENT
  Age: 84 Year
  Sex: Male

DRUGS (4)
  1. AVASTIN [Suspect]
     Indication: AGE-RELATED MACULAR DEGENERATION
     Dosage: 1.25  MG/ 0.05 ML      INTRAOCULAR?03/04/2013  -  03/04/2013
     Route: 031
     Dates: start: 20130304, end: 20130304
  2. TOPICAL TETRACAINE [Concomitant]
  3. LIDOCAINE GEL [Concomitant]
  4. BETADINE [Concomitant]

REACTIONS (1)
  - Endophthalmitis [None]
